FAERS Safety Report 4831792-5 (Version None)
Quarter: 2005Q4

REPORT INFORMATION
  Report Type: 
  Country: None (occurrence: None)
  Receive Date: 20051118
  Receipt Date: 20051107
  Transmission Date: 20060501
  Serious: Yes (Other)
  Sender: FDA-Public Use
  Company Number: PHBS2005DE16824

PATIENT
  Age: 43 Year
  Sex: Female

DRUGS (2)
  1. ZOMETA [Suspect]
     Indication: OSTEOLYSIS
     Dosage: 4 MG, QMO
     Dates: start: 20010501
  2. RADIATION THERAPY [Suspect]
     Route: 065
     Dates: start: 20000101

REACTIONS (9)
  - DRUG INEFFECTIVE [None]
  - IMPAIRED HEALING [None]
  - JAW DISORDER [None]
  - METASTASES TO BONE [None]
  - ORAL SURGERY [None]
  - OSTEOLYSIS [None]
  - OSTEONECROSIS [None]
  - OSTEOSCLEROSIS [None]
  - WOUND DECOMPOSITION [None]
